FAERS Safety Report 15190085 (Version 2)
Quarter: 2018Q3

REPORT INFORMATION
  Report Type: Report from Study
  Country: None (occurrence: IT)
  Receive Date: 20180724
  Receipt Date: 20180817
  Transmission Date: 20181010
  Serious: Yes (Other)
  Sender: FDA-Public Use
  Company Number: IT-ABBVIE-18S-083-2427435-00

PATIENT
  Age: 61 Year
  Sex: Female

DRUGS (1)
  1. DUODOPA [Suspect]
     Active Substance: CARBIDOPA\LEVODOPA
     Indication: PARKINSON^S DISEASE
     Dosage: MD: 7+3??CR: 2,1??ED: 1,3
     Route: 050
     Dates: start: 20160224, end: 20180629

REACTIONS (2)
  - Bundle branch block left [Recovered/Resolved]
  - Stoma site infection [Unknown]

NARRATIVE: CASE EVENT DATE: 20180629
